FAERS Safety Report 7712818-8 (Version None)
Quarter: 2011Q3

REPORT INFORMATION
  Report Type: 
  Country: None (occurrence: None)
  Receive Date: 20110826
  Receipt Date: 20110818
  Transmission Date: 20111222
  Serious: Yes (Other)
  Sender: FDA-Public Use
  Company Number: PHHY2009CA43538

PATIENT
  Sex: Female

DRUGS (3)
  1. ZOLEDRONOC ACID [Suspect]
     Dosage: 5 MG/ 100 ML
     Route: 042
     Dates: start: 20090929
  2. ZOLEDRONOC ACID [Suspect]
     Dosage: 5 MG,/ 100 ML
     Route: 042
     Dates: start: 20100915
  3. ZOLEDRONOC ACID [Suspect]
     Indication: OSTEOPOROSIS
     Dosage: 5 MG,/100 ML
     Dates: start: 20080929

REACTIONS (3)
  - ARTHRALGIA [None]
  - BONE PAIN [None]
  - PAIN [None]
